FAERS Safety Report 7299932-9 (Version None)
Quarter: 2011Q1

REPORT INFORMATION
  Report Type: 
  Country: None (occurrence: None)
  Receive Date: 20110217
  Receipt Date: 20110202
  Transmission Date: 20110831
  Serious: Yes (Other)
  Sender: FDA-Public Use
  Company Number: US-BAYER-201021691NA

PATIENT
  Sex: Female

DRUGS (7)
  1. ZOCOR [Concomitant]
  2. ASPIRIN [Concomitant]
  3. UNCODEABLE ^UNCLASSIFIABLE^ [Concomitant]
  4. YASMIN [Suspect]
     Indication: PRODUCT USED FOR UNKNOWN INDICATION
     Route: 048
     Dates: start: 20080201, end: 20080304
  5. PLAVIX [Concomitant]
     Dosage: UNK
     Dates: end: 20090824
  6. YAZ [Suspect]
     Indication: PRODUCT USED FOR UNKNOWN INDICATION
     Route: 048
     Dates: start: 20080201, end: 20080304
  7. ALTACE [Concomitant]

REACTIONS (1)
  - MYOCARDIAL ISCHAEMIA [None]
